FAERS Safety Report 23959104 (Version 2)
Quarter: 2024Q4

REPORT INFORMATION
  Report Type: Report from Study
  Country: DE (occurrence: DE)
  Receive Date: 20240611
  Receipt Date: 20241015
  Transmission Date: 20250115
  Serious: Yes (Other)
  Sender: JOHNSON AND JOHNSON
  Company Number: DE-JNJFOC-20200700419

PATIENT
  Sex: Male

DRUGS (1)
  1. SIMPONI [Suspect]
     Active Substance: GOLIMUMAB
     Indication: Axial spondyloarthritis
     Route: 058
     Dates: start: 20190306

REACTIONS (5)
  - Pregnancy of partner [Recovered/Resolved]
  - Fatigue [Unknown]
  - Prostatomegaly [Unknown]
  - Blood urine present [Unknown]
  - COVID-19 [Unknown]

NARRATIVE: CASE EVENT DATE: 20190815
